FAERS Safety Report 5818652-8 (Version None)
Quarter: 2008Q3

REPORT INFORMATION
  Report Type: 
  Country: None (occurrence: None)
  Receive Date: 20080717
  Receipt Date: 20080717
  Transmission Date: 20090109
  Serious: Yes (Other)
  Sender: FDA-Public Use
  Company Number: None

PATIENT
  Age: 76 Year
  Sex: Male
  Weight: 81.6475 kg

DRUGS (1)
  1. ZETIA [Suspect]
     Dosage: 1 A DAY
     Dates: start: 20080101

REACTIONS (1)
  - PAIN IN EXTREMITY [None]
